FAERS Safety Report 24340220 (Version 1)
Quarter: 2024Q3

REPORT INFORMATION
  Report Type: Spontaneous
  Country: US (occurrence: None)
  Receive Date: 20240919
  Receipt Date: 20240919
  Transmission Date: 20241017
  Serious: Yes (Other)
  Sender: Public
  Company Number: None

PATIENT
  Age: 57 Year
  Sex: Male
  Weight: 76.16 kg

DRUGS (5)
  1. DIVALPROEX SODIUM [Suspect]
     Active Substance: DIVALPROEX SODIUM
     Indication: Schizoaffective disorder
     Dosage: FREQUENCY : DAILY;?
     Route: 048
  2. BENZTROPINE [Concomitant]
     Active Substance: BENZTROPINE
  3. FLUPHENAZINE [Concomitant]
     Active Substance: FLUPHENAZINE
  4. LITHIUM [Concomitant]
     Active Substance: LITHIUM
  5. MELATONIN [Concomitant]
     Active Substance: MELATONIN

REACTIONS (2)
  - Memory impairment [None]
  - Ammonia increased [None]

NARRATIVE: CASE EVENT DATE: 20240701
